FAERS Safety Report 16183290 (Version 2)
Quarter: 2019Q4

REPORT INFORMATION
  Report Type: Report from Study
  Country: BE (occurrence: BE)
  Receive Date: 20190411
  Receipt Date: 20191227
  Transmission Date: 20200122
  Serious: Yes (Other)
  Sender: FDA-Public Use
  Company Number: BE-EMD SERONO-9083197

PATIENT
  Age: 63 Year
  Sex: Female

DRUGS (3)
  1. REBIF [Suspect]
     Active Substance: INTERFERON BETA-1A
     Indication: MULTIPLE SCLEROSIS
     Route: 058
     Dates: start: 20160107
  2. BISOPROLOL [Suspect]
     Active Substance: BISOPROLOL
     Indication: BLOOD PRESSURE MEASUREMENT
     Dates: end: 2019
  3. PARACETAMOL [Concomitant]
     Active Substance: ACETAMINOPHEN
     Indication: PRODUCT USED FOR UNKNOWN INDICATION

REACTIONS (6)
  - Meniscus operation [Unknown]
  - Asthenia [Unknown]
  - Blood pressure increased [Unknown]
  - Headache [Unknown]
  - Blood pressure decreased [Unknown]
  - Product dose omission [Unknown]

NARRATIVE: CASE EVENT DATE: 201903
